FAERS Safety Report 14860230 (Version 1)
Quarter: 2018Q2

REPORT INFORMATION
  Report Type: Spontaneous
  Country: TW (occurrence: TW)
  Receive Date: 20180508
  Receipt Date: 20180508
  Transmission Date: 20180711
  Serious: Yes (Hospitalization, Other)
  Sender: FDA-Public Use
  Company Number: TW-INGENUS PHARMACEUTICALS NJ, LLC-ING201804-000389

PATIENT
  Age: 20 Month
  Sex: Female

DRUGS (3)
  1. CARISOPRODOL, ASPIRIN AND CODEINE PHOSPHATE [Suspect]
     Active Substance: ASPIRIN\CARISOPRODOL\CODEINE PHOSPHATE
     Indication: KAWASAKI^S DISEASE
     Route: 048
  2. CARISOPRODOL, ASPIRIN AND CODEINE PHOSPHATE [Suspect]
     Active Substance: ASPIRIN\CARISOPRODOL\CODEINE PHOSPHATE
     Route: 048
  3. MANNITOL. [Concomitant]
     Active Substance: MANNITOL
     Indication: BRAIN OEDEMA
     Route: 042

REACTIONS (3)
  - Reye^s syndrome [Recovered/Resolved]
  - Product use in unapproved indication [Unknown]
  - Toxicity to various agents [Recovered/Resolved]
